FAERS Safety Report 17338407 (Version 1)
Quarter: 2020Q1

REPORT INFORMATION
  Report Type: Spontaneous
  Country: US (occurrence: US)
  Receive Date: 20200129
  Receipt Date: 20200129
  Transmission Date: 20200409
  Serious: Yes (Hospitalization)
  Sender: FDA-Public Use
  Company Number: US-ZYDUS-046759

PATIENT
  Age: 71 Year
  Sex: Male

DRUGS (3)
  1. HYDROCORTISONE. [Interacting]
     Active Substance: HYDROCORTISONE
     Indication: ENDOTRACHEAL INTUBATION
     Route: 042
  2. ROCURONIUM/ROCURONIUM BROMIDE [Concomitant]
     Active Substance: ROCURONIUM BROMIDE
     Indication: ENDOTRACHEAL INTUBATION
     Route: 065
  3. ETOMIDATE. [Suspect]
     Active Substance: ETOMIDATE
     Indication: ENDOTRACHEAL INTUBATION
     Route: 065

REACTIONS (2)
  - Starvation ketoacidosis [Recovering/Resolving]
  - Drug interaction [Unknown]
